FAERS Safety Report 6979462-1 (Version None)
Quarter: 2010Q3

REPORT INFORMATION
  Report Type: 
  Country: None (occurrence: None)
  Receive Date: 20100910
  Receipt Date: 20100910
  Transmission Date: 20110219
  Serious: Yes (Hospitalization)
  Sender: FDA-Public Use
  Company Number: None

PATIENT
  Age: 49 Year
  Sex: Female

DRUGS (3)
  1. HALOPERIDOL [Suspect]
     Indication: SCHIZOAFFECTIVE DISORDER
     Dosage: 5MG ONE TIME IM
     Route: 030
  2. LORAZEPAM [Suspect]
     Indication: SCHIZOAFFECTIVE DISORDER
     Dosage: 2MG ONE TIME IM
     Route: 030
  3. ZYDIS 20MG LILLY [Suspect]
     Indication: SCHIZOAFFECTIVE DISORDER
     Dosage: 20MG ONE TIME PO
     Route: 048

REACTIONS (5)
  - APHASIA [None]
  - BODY TEMPERATURE DECREASED [None]
  - DROOLING [None]
  - SOMNOLENCE [None]
  - VOMITING [None]
